FAERS Safety Report 10692050 (Version 3)
Quarter: 2015Q1

REPORT INFORMATION
  Report Type: Report from Study
  Country: RO (occurrence: RO)
  Receive Date: 20150106
  Receipt Date: 20150108
  Transmission Date: 20150720
  Serious: Yes (Hospitalization)
  Sender: FDA-Public Use
  Company Number: RO-BEH-2013037122

PATIENT
  Age: 36 Year
  Sex: Female
  Weight: 59 kg

DRUGS (5)
  1. C ESTERASE INHIBITOR [Suspect]
     Active Substance: HUMAN C1-ESTERASE INHIBITOR
     Dosage: INFUSION RATE: 4 ML/MIN
     Route: 042
     Dates: start: 20130412, end: 20130412
  2. C ESTERASE INHIBITOR [Suspect]
     Active Substance: HUMAN C1-ESTERASE INHIBITOR
     Indication: HEREDITARY ANGIOEDEMA
     Dosage: GESTATION WK 1, INFUSION RATE: 4 ML/MIN
     Route: 042
     Dates: start: 20130619, end: 20130619
  3. C ESTERASE INHIBITOR [Suspect]
     Active Substance: HUMAN C1-ESTERASE INHIBITOR
     Dosage: INFUSION RATE: 4 ML/MIN
     Route: 042
     Dates: start: 20130531, end: 20130531
  4. C ESTERASE INHIBITOR [Suspect]
     Active Substance: HUMAN C1-ESTERASE INHIBITOR
     Dosage: INFUSION RATE: 4 ML/MIN
     Route: 042
     Dates: start: 20130511, end: 20130511
  5. C ESTERASE INHIBITOR [Suspect]
     Active Substance: HUMAN C1-ESTERASE INHIBITOR
     Dosage: GESTATION WK 3, INFUSION RATE: 4 ML/MIN
     Route: 042
     Dates: start: 20130629, end: 20130629

REACTIONS (3)
  - Abortion spontaneous [Recovered/Resolved]
  - Exposure during pregnancy [Unknown]
  - Maternal exposure before pregnancy [Unknown]

NARRATIVE: CASE EVENT DATE: 20130815
